FAERS Safety Report 24116326 (Version 1)
Quarter: 2024Q3

REPORT INFORMATION
  Report Type: Spontaneous
  Country: DE (occurrence: DE)
  Receive Date: 20240722
  Receipt Date: 20240722
  Transmission Date: 20241016
  Serious: Yes (Other)
  Sender: PIERRE FABRE MEDICAMENT
  Company Number: None

PATIENT

DRUGS (6)
  1. PROPRANOLOL [Interacting]
     Active Substance: PROPRANOLOL HYDROCHLORIDE
     Indication: Essential tremor
     Dosage: 4 DF
     Route: 065
     Dates: start: 2017
  2. QUVIVIQ [Interacting]
     Active Substance: DARIDOREXANT
     Indication: Sleep disorder
     Dosage: UNK
     Route: 065
     Dates: start: 20240427, end: 20240514
  3. AMITRIPTYLINE [Interacting]
     Active Substance: AMITRIPTYLINE
     Indication: Sleep disorder
     Dosage: FROM THE 2ND DAY OF THE START DATE QUVIVIQ 25MG ADDITIONALLY
     Route: 065
     Dates: start: 2017
  4. TRIMIPRAMINE [Interacting]
     Active Substance: TRIMIPRAMINE
     Indication: Sleep disorder
     Dosage: UNK
     Route: 065
     Dates: start: 2017
  5. QUVIVIQ [Interacting]
     Active Substance: DARIDOREXANT
     Indication: Sleep disorder
     Dosage: UNK
     Route: 065
     Dates: start: 20240521, end: 20240523
  6. MELATONIN [Concomitant]
     Active Substance: MELATONIN
     Indication: Product used for unknown indication
     Dosage: UNK
     Route: 065
     Dates: start: 2017

REACTIONS (9)
  - Brain injury [Unknown]
  - Drug interaction [Unknown]
  - Product prescribing issue [Recovered/Resolved]
  - Drug ineffective [Not Recovered/Not Resolved]
  - Product knowledge deficit [Unknown]
  - Product label confusion [Not Recovered/Not Resolved]
  - Product use in unapproved indication [Unknown]
  - Product use issue [Unknown]
  - Off label use [Unknown]

NARRATIVE: CASE EVENT DATE: 20240101
